FAERS Safety Report 4594220-3 (Version None)
Quarter: 2005Q1

REPORT INFORMATION
  Report Type: 
  Country: None (occurrence: None)
  Receive Date: 20050301
  Receipt Date: 20040720
  Transmission Date: 20050727
  Serious: No
  Sender: FDA-Public Use
  Company Number: US-GLAXOSMITHKLINE-A0519068A

PATIENT
  Age: 58 Year
  Sex: Female

DRUGS (5)
  1. VALTREX [Suspect]
     Indication: ILL-DEFINED DISORDER
     Dosage: 500MG PER DAY
     Route: 048
  2. FLONASE [Concomitant]
  3. ALLEGRA [Concomitant]
  4. XANAX [Concomitant]
  5. ZIAC [Concomitant]

REACTIONS (1)
  - DRUG INEFFECTIVE [None]
